FAERS Safety Report 5378290-0 (Version None)
Quarter: 2007Q2

REPORT INFORMATION
  Report Type: 
  Country: None (occurrence: None)
  Receive Date: 20070619
  Receipt Date: 20070321
  Transmission Date: 20071010
  Serious: Yes (Other)
  Sender: FDA-Public Use
  Company Number: 200710282BBE

PATIENT
  Age: 36 Year
  Sex: Male

DRUGS (7)
  1. HELIXATE [Suspect]
     Indication: FACTOR VIII DEFICIENCY
     Dates: start: 20060901, end: 20061001
  2. HELIXATE [Suspect]
     Dates: start: 20061001, end: 20061201
  3. HELIXATE [Suspect]
     Dates: start: 20061201, end: 20070201
  4. HELIXATE [Suspect]
     Dates: start: 20070201
  5. MONOCLATE-P [Concomitant]
  6. MONARC-M [Concomitant]
  7. ARC [Concomitant]

REACTIONS (2)
  - FACTOR VIII INHIBITION [None]
  - HAEMORRHAGE [None]
